FAERS Safety Report 7353608-8 (Version None)
Quarter: 2011Q1

REPORT INFORMATION
  Report Type: 
  Country: None (occurrence: None)
  Receive Date: 20110310
  Receipt Date: 20110310
  Transmission Date: 20110831
  Serious: Yes (Life-Threatening)
  Sender: FDA-Public Use
  Company Number: None

PATIENT
  Age: 61 Year
  Sex: Female
  Weight: 90.7194 kg

DRUGS (1)
  1. ACTONEL [Suspect]
     Dosage: ONCE DAY MOUTH, TRIED ALL THREE OVER SEVERAL YEARS - ACTONEL THE LAST AND LONGEST
     Route: 048

REACTIONS (2)
  - PAIN [None]
  - ARTHRALGIA [None]
